FAERS Safety Report 17035369 (Version 1)
Quarter: 2019Q4

REPORT INFORMATION
  Report Type: Spontaneous
  Country: US (occurrence: US)
  Receive Date: 20191115
  Receipt Date: 20191115
  Transmission Date: 20200122
  Serious: Yes (Other)
  Sender: FDA-Public Use
  Company Number: US-EMCURE PHARMACEUTICALS LTD-2019-EPL-0996

PATIENT
  Age: 76 Year
  Sex: Female

DRUGS (3)
  1. METOPROLOL. [Concomitant]
     Active Substance: METOPROLOL
  2. ROSUVASTATIN. [Concomitant]
     Active Substance: ROSUVASTATIN
  3. DOXYCYCLINE HYCLATE. [Suspect]
     Active Substance: DOXYCYCLINE HYCLATE
     Indication: EYELID FOLLICULITIS
     Dosage: 100 MILLIGRAM, DAILY
     Route: 048

REACTIONS (1)
  - Conjunctival cyst [Unknown]
